FAERS Safety Report 9006097 (Version 1)
Quarter: 2013Q1

REPORT INFORMATION
  Report Type: Spontaneous
  Country: BR (occurrence: BR)
  Receive Date: 20130109
  Receipt Date: 20130109
  Transmission Date: 20140127
  Serious: Yes (Hospitalization, Other)
  Sender: FDA-Public Use
  Company Number: PHHY2013BR001584

PATIENT
  Age: 71 Year
  Sex: Female

DRUGS (3)
  1. GALVUS MET [Suspect]
     Dosage: 1 DF, (850 MET AND 50 MG VILDA), UNK
  2. GALVUS MET [Suspect]
     Dosage: 1 DF, (1000 MG MET AND 50 MG VILDA), UNK
  3. LEPONEX [Suspect]

REACTIONS (4)
  - Pneumonia [Unknown]
  - Aspiration bronchial [Unknown]
  - Cardio-respiratory arrest [Unknown]
  - Asthenia [Unknown]
